FAERS Safety Report 16878882 (Version 1)
Quarter: 2019Q4

REPORT INFORMATION
  Report Type: Report from Study
  Country: US (occurrence: US)
  Receive Date: 20191002
  Receipt Date: 20191002
  Transmission Date: 20200122
  Serious: Yes (Hospitalization)
  Sender: FDA-Public Use
  Company Number: US-EXELIXIS-CABO-19022910

PATIENT
  Age: 64 Year
  Sex: Male

DRUGS (3)
  1. CABOMETYX [Suspect]
     Active Substance: CABOZANTINIB S-MALATE
     Dosage: 40 MG, QD (ON EMPTY STOMACH)
     Dates: start: 20190909, end: 20190913
  2. CABOMETYX [Suspect]
     Active Substance: CABOZANTINIB S-MALATE
     Indication: RENAL CANCER
     Dosage: 60 MG, QD
     Dates: start: 20190625, end: 201907
  3. CABOMETYX [Suspect]
     Active Substance: CABOZANTINIB S-MALATE
     Dosage: 40 MG, QD(ON AN EMPTY STOMACH)
     Dates: start: 20190726, end: 201908

REACTIONS (14)
  - Red blood cell count decreased [Unknown]
  - Device related infection [Recovering/Resolving]
  - Weight fluctuation [Recovered/Resolved]
  - Nausea [Unknown]
  - Blood calcium increased [Not Recovered/Not Resolved]
  - Fatigue [Not Recovered/Not Resolved]
  - Chapped lips [Unknown]
  - Oral discomfort [Unknown]
  - White blood cell count decreased [Unknown]
  - Muscular weakness [Not Recovered/Not Resolved]
  - Stomatitis [Recovered/Resolved]
  - Hepatic enzyme increased [Recovering/Resolving]
  - Blister [Recovered/Resolved]
  - Glossodynia [Recovering/Resolving]

NARRATIVE: CASE EVENT DATE: 20190730
